FAERS Safety Report 5740072-5 (Version None)
Quarter: 2008Q2

REPORT INFORMATION
  Report Type: 
  Country: None (occurrence: None)
  Receive Date: 20080516
  Receipt Date: 20080507
  Transmission Date: 20081010
  Serious: Yes (Other)
  Sender: FDA-Public Use
  Company Number: PHHY2008AU07377

PATIENT
  Age: 70 Year
  Sex: Female

DRUGS (1)
  1. FAMVIR [Suspect]
     Dosage: 750 MG/ DAY
     Route: 048
     Dates: start: 19970101, end: 19970107

REACTIONS (6)
  - FATIGUE [None]
  - HYPONATRAEMIA [None]
  - INAPPROPRIATE ANTIDIURETIC HORMONE SECRETION [None]
  - NAUSEA [None]
  - VERTIGO [None]
  - VOMITING [None]
